FAERS Safety Report 11168535 (Version 3)
Quarter: 2015Q2

REPORT INFORMATION
  Report Type: Spontaneous
  Country: JP (occurrence: JP)
  Receive Date: 20150605
  Receipt Date: 20150625
  Transmission Date: 20150821
  Serious: Yes (Other)
  Sender: FDA-Public Use
  Company Number: JP-PFIZER INC-2015187022

PATIENT
  Age: 66 Year
  Sex: Female

DRUGS (4)
  1. LIMAS [Concomitant]
     Active Substance: LITHIUM CARBONATE
     Dosage: UNK
     Dates: start: 20101009
  2. LYRICA [Suspect]
     Active Substance: PREGABALIN
     Dosage: 25 MG, 2X/DAY
     Route: 048
     Dates: start: 20150514
  3. VOLTAREN [Concomitant]
     Active Substance: DICLOFENAC SODIUM
     Dosage: 50 MG, UNK
     Route: 054
     Dates: start: 20150514, end: 20150521
  4. DEPAKENE [Concomitant]
     Active Substance: VALPROIC ACID
     Dosage: UNK
     Dates: start: 20101009

REACTIONS (2)
  - Loss of consciousness [Unknown]
  - Road traffic accident [Recovered/Resolved]

NARRATIVE: CASE EVENT DATE: 201505
